FAERS Safety Report 25259744 (Version 4)
Quarter: 2025Q2

REPORT INFORMATION
  Report Type: Spontaneous
  Country: US (occurrence: US)
  Receive Date: 20250501
  Receipt Date: 20250516
  Transmission Date: 20250716
  Serious: No
  Sender: PFIZER
  Company Number: US-PFIZER INC-202500090735

PATIENT
  Age: 58 Year
  Sex: Female

DRUGS (5)
  1. TUKYSA [Suspect]
     Active Substance: TUCATINIB
     Dosage: 300 MG, 2X/DAY
     Route: 048
  2. TUKYSA [Suspect]
     Active Substance: TUCATINIB
     Dosage: 600 MG, DAILY (150 MG, TAKE 4 TABLETS BY MOUTH DAILY)
     Route: 048
  3. TUKYSA [Suspect]
     Active Substance: TUCATINIB
     Dosage: TWO TABLETS TWICE DAILY
  4. CAPECITABINE [Concomitant]
     Active Substance: CAPECITABINE
  5. FEMARA [Concomitant]
     Active Substance: LETROZOLE

REACTIONS (3)
  - Confusional state [Recovering/Resolving]
  - Off label use [Unknown]
  - Product use issue [Unknown]

NARRATIVE: CASE EVENT DATE: 20250501
